FAERS Safety Report 4956289-3 (Version None)
Quarter: 2006Q1

REPORT INFORMATION
  Report Type: 
  Country: None (occurrence: None)
  Receive Date: 20060323
  Receipt Date: 20060315
  Transmission Date: 20060701
  Serious: Yes (Other)
  Sender: FDA-Public Use
  Company Number: FR200603004062

PATIENT
  Age: 50 Year
  Sex: Male

DRUGS (1)
  1. ALIMTA [Suspect]
     Indication: NON-SMALL CELL LUNG CANCER
     Dosage: 500 MG/M2, OTHER, INTRAVENOUS
     Route: 042
     Dates: start: 20060301

REACTIONS (8)
  - CELLULITIS [None]
  - CONJUNCTIVITIS [None]
  - DACRYOSTENOSIS ACQUIRED [None]
  - DRUG INEFFECTIVE [None]
  - ERYSIPELAS [None]
  - INFLAMMATION [None]
  - INFUSION RELATED REACTION [None]
  - LACRIMATION INCREASED [None]
